FAERS Safety Report 8955747 (Version 4)
Quarter: 2013Q1

REPORT INFORMATION
  Report Type: Spontaneous
  Country: US (occurrence: US)
  Receive Date: 20121210
  Receipt Date: 20130122
  Transmission Date: 20140127
  Serious: Yes (Other)
  Sender: FDA-Public Use
  Company Number: US-PFIZER INC-2012303841

PATIENT
  Age: 74 Year
  Sex: Female
  Weight: 117.91 kg

DRUGS (27)
  1. GLUCOTROL XL [Suspect]
     Indication: DIABETES MELLITUS
     Dosage: 2.5 MG, 2X/DAY
     Route: 048
  2. BABY ASPIRIN [Concomitant]
     Dosage: 81 MG, UNK
  3. CALCITRIOL [Concomitant]
     Dosage: 0.25 UG, UNK
  4. CALCIUM [Concomitant]
     Dosage: UNK
  5. CLONIDINE [Concomitant]
     Dosage: 0.1 MG, UNK
  6. GUAIFENESIN/PHENYLEPHRINE [Concomitant]
     Dosage: UNK, 5X/DAY
  7. NASONEX [Concomitant]
     Dosage: UNK
  8. GLIPIZIDE [Concomitant]
     Dosage: UNK
  9. OLUX [Concomitant]
     Dosage: UNK
     Route: 061
  10. LASIX [Concomitant]
     Dosage: 20 MG, UNK
  11. LIPITOR [Concomitant]
     Dosage: 40 MG, UNK
  12. LYRICA [Concomitant]
     Dosage: 75 MG, UNK
  13. MULTIVITAMINS [Concomitant]
     Dosage: UNK
  14. NORVASC [Concomitant]
     Dosage: 5 MG, UNK
  15. VASOTEC [Concomitant]
     Dosage: 10 MG, UNK
  16. VITAMIN C [Concomitant]
     Dosage: UNK
  17. ZOLOFT [Concomitant]
     Dosage: 50 MG, UNK
  18. FISH OIL [Concomitant]
     Dosage: UNK
  19. ZETIA [Concomitant]
     Dosage: 10 MG, UNK
  20. LORATADINE [Concomitant]
     Dosage: 10 MG, UNK
  21. GLUCOSAMINE [Concomitant]
     Dosage: UNK
  22. SINGULAIR [Concomitant]
     Dosage: UNK
  23. LEVAQUIN [Concomitant]
     Dosage: 25 MG, UNK
  24. CALCIPOTRIENE [Concomitant]
     Dosage: UNK
  25. ARANESP [Concomitant]
     Dosage: UNK
  26. VERAMYST [Concomitant]
     Dosage: UNK
  27. SIMVASTATIN [Concomitant]
     Dosage: UNK

REACTIONS (2)
  - Blood glucose increased [Unknown]
  - Infection [Unknown]
